FAERS Safety Report 16199210 (Version 2)
Quarter: 2020Q3

REPORT INFORMATION
  Report Type: Spontaneous
  Country: US (occurrence: US)
  Receive Date: 20190415
  Receipt Date: 20200924
  Transmission Date: 20201102
  Serious: Yes (Death, Other)
  Sender: FDA-Public Use
  Company Number: US-JNJFOC-20190419060

PATIENT
  Age: 75 Year
  Sex: Male

DRUGS (1)
  1. XARELTO [Suspect]
     Active Substance: RIVAROXABAN
     Indication: PRODUCT USED FOR UNKNOWN INDICATION
     Route: 048
     Dates: start: 201408, end: 201508

REACTIONS (3)
  - Left ventricular hypertrophy [Fatal]
  - Internal haemorrhage [Unknown]
  - Atrial fibrillation [Fatal]

NARRATIVE: CASE EVENT DATE: 20160101
